FAERS Safety Report 8802379 (Version 1)
Quarter: 2012Q4

REPORT INFORMATION
  Report Type: 
  Country: US (occurrence: US)
  Receive Date: 20120921
  Receipt Date: 20120921
  Transmission Date: 20130627
  Serious: Yes (Life-Threatening)
  Sender: FDA-Public Use
  Company Number: US-ASTRAZENECA-2012SE72578

PATIENT
  Age: 57 Year
  Sex: Male
  Weight: 108.9 kg

DRUGS (5)
  1. SEROQUEL [Suspect]
     Indication: BIPOLAR DISORDER
     Route: 048
     Dates: start: 2010
  2. SEROQUEL [Suspect]
     Indication: BIPOLAR DISORDER
     Route: 048
  3. SEROQUEL [Suspect]
     Indication: BIPOLAR DISORDER
     Dosage: 100 MG QAM, 100 MG EACH NOON, AND 300 MG NIGHTLY
     Route: 048
  4. PREDIABETES MEDICATION [Concomitant]
     Indication: GLUCOSE TOLERANCE IMPAIRED
     Route: 048
  5. DEPAKOTE [Concomitant]

REACTIONS (19)
  - Drug abuse [Unknown]
  - Alcohol abuse [Unknown]
  - Insomnia [Unknown]
  - Eating disorder [Unknown]
  - Anxiety [Unknown]
  - Panic attack [Unknown]
  - Stupor [Unknown]
  - Activities of daily living impaired [Unknown]
  - Depressed mood [Unknown]
  - Glucose tolerance impaired [Unknown]
  - Fall [Unknown]
  - Injury [Unknown]
  - Weight increased [Unknown]
  - Somnolence [Unknown]
  - Fatigue [Unknown]
  - Asthenia [Unknown]
  - Sedation [Unknown]
  - Hypokinesia [Unknown]
  - Intentional drug misuse [Unknown]
